FAERS Safety Report 19682311 (Version 2)
Quarter: 2021Q3

REPORT INFORMATION
  Report Type: Other
  Country: US (occurrence: US)
  Receive Date: 20210810
  Receipt Date: 20210819
  Transmission Date: 20211014
  Serious: Yes (Other)
  Sender: FDA-Public Use
  Company Number: US-ROCHE-2885772

PATIENT
  Sex: Female
  Weight: 79.9 kg

DRUGS (7)
  1. ACTEMRA [Suspect]
     Active Substance: TOCILIZUMAB
  2. PROTONIX [Concomitant]
     Active Substance: PANTOPRAZOLE SODIUM
     Indication: GASTROOESOPHAGEAL REFLUX DISEASE
     Route: 048
  3. ACTEMRA [Suspect]
     Active Substance: TOCILIZUMAB
  4. METFORMIN [Concomitant]
     Active Substance: METFORMIN HYDROCHLORIDE
     Route: 048
  5. PRAVACHOL [Concomitant]
     Active Substance: PRAVASTATIN SODIUM
     Route: 048
  6. PEPCID [Concomitant]
     Active Substance: FAMOTIDINE
     Route: 048
  7. ACTEMRA [Suspect]
     Active Substance: TOCILIZUMAB
     Indication: RHEUMATOID ARTHRITIS
     Dosage: INJECT 0.9ML (162MG TOTAL) SUBCUTANEOUSLY EVERY 14 DAY(S)
     Route: 058

REACTIONS (1)
  - Breast cancer [Unknown]
